FAERS Safety Report 7970422-0 (Version None)
Quarter: 2011Q4

REPORT INFORMATION
  Report Type: 
  Country: None (occurrence: None)
  Receive Date: 20111212
  Receipt Date: 20111129
  Transmission Date: 20120403
  Serious: Yes (Other)
  Sender: FDA-Public Use
  Company Number: PHEH2011US009156

PATIENT
  Sex: Male

DRUGS (4)
  1. PERCOCET [Concomitant]
     Dosage: UNK
  2. ASPIRIN [Concomitant]
     Dosage: UNK
  3. PRILOSEC [Concomitant]
     Dosage: UNK
  4. SANDOSTATIN LAR [Suspect]
     Indication: CARCINOID SYNDROME
     Dosage: 30 MG, UNK
     Route: 030
     Dates: start: 20110117

REACTIONS (3)
  - SPONTANEOUS PENILE ERECTION [None]
  - BLOOD CHROMOGRANIN A INCREASED [None]
  - PRIAPISM [None]
